FAERS Safety Report 18703441 (Version 2)
Quarter: 2021Q1

REPORT INFORMATION
  Report Type: Spontaneous
  Country: US (occurrence: US)
  Receive Date: 20210105
  Receipt Date: 20210217
  Transmission Date: 20210419
  Serious: Yes (Other)
  Sender: FDA-Public Use
  Company Number: US-NOVOPROD-777530

PATIENT
  Age: 61 Year
  Sex: Male
  Weight: 112.47 kg

DRUGS (2)
  1. OZEMPIC [Suspect]
     Active Substance: SEMAGLUTIDE
     Dosage: 0.5 MG, QW
     Route: 058
     Dates: start: 202011, end: 20201201
  2. OZEMPIC [Suspect]
     Active Substance: SEMAGLUTIDE
     Indication: TYPE 2 DIABETES MELLITUS
     Dosage: 0.25 MG, QW
     Route: 058
     Dates: start: 202010, end: 202011

REACTIONS (3)
  - Condition aggravated [Recovered/Resolved]
  - Peripheral coldness [Recovered/Resolved]
  - Erectile dysfunction [Recovered/Resolved]

NARRATIVE: CASE EVENT DATE: 202010
